FAERS Safety Report 8480904-3 (Version None)
Quarter: 2012Q3

REPORT INFORMATION
  Report Type: 
  Country: None (occurrence: None)
  Receive Date: 20120702
  Receipt Date: 20120618
  Transmission Date: 20120928
  Serious: Yes (Other)
  Sender: FDA-Public Use
  Company Number: NG-MYLANLABS-2012S1012602

PATIENT
  Age: 39 Year

DRUGS (1)
  1. IBUPROFEN [Suspect]
     Indication: PAIN
     Route: 065

REACTIONS (4)
  - CHOKING SENSATION [None]
  - SNEEZING [None]
  - NASAL CONGESTION [None]
  - DYSPNOEA [None]
